FAERS Safety Report 9258346 (Version 1)
Quarter: 2013Q2

REPORT INFORMATION
  Report Type: Spontaneous
  Country: US (occurrence: None)
  Receive Date: 20130424
  Receipt Date: 20130424
  Transmission Date: 20140414
  Serious: Yes (Other)
  Sender: FDA-Public Use
  Company Number: None

PATIENT
  Age: 70 Year
  Sex: Female
  Weight: 54.43 kg

DRUGS (2)
  1. HYDROXYZINE HCL [Suspect]
     Indication: PRURITUS
     Dosage: 1 A BEDTIME, 3 NIGNTS
     Route: 048
     Dates: start: 201303
  2. HYDROXYZINE HCL [Suspect]
     Indication: DERMATITIS ALLERGIC
     Dosage: 1 A BEDTIME, 3 NIGNTS
     Route: 048
     Dates: start: 201303

REACTIONS (3)
  - Somnolence [None]
  - Product odour abnormal [None]
  - Product taste abnormal [None]
